FAERS Safety Report 14310952 (Version 1)
Quarter: 2017Q4

REPORT INFORMATION
  Report Type: Spontaneous
  Country: US (occurrence: US)
  Receive Date: 20171221
  Receipt Date: 20171221
  Transmission Date: 20180321
  Serious: No
  Sender: FDA-Public Use
  Company Number: US-SA-2017SA168980

PATIENT
  Sex: Male
  Weight: 75.74 kg

DRUGS (1)
  1. PLAVIX [Suspect]
     Active Substance: CLOPIDOGREL BISULFATE
     Indication: MITRAL VALVE REPLACEMENT
     Route: 048

REACTIONS (1)
  - Insomnia [Unknown]
